FAERS Safety Report 19768389 (Version 1)
Quarter: 2021Q3

REPORT INFORMATION
  Report Type: Other
  Country: DE (occurrence: DE)
  Receive Date: 20210831
  Receipt Date: 20210831
  Transmission Date: 20211014
  Serious: Yes (Hospitalization)
  Sender: FDA-Public Use
  Company Number: DE-ROCHE-2174491

PATIENT
  Age: 72 Year
  Sex: Female

DRUGS (10)
  1. TOCILIZUMAB. [Suspect]
     Active Substance: TOCILIZUMAB
     Indication: RHEUMATOID ARTHRITIS
     Route: 058
     Dates: start: 201709, end: 20180105
  2. METOPROLOL. [Concomitant]
     Active Substance: METOPROLOL
  3. PREDNISOLON [Concomitant]
     Active Substance: PREDNISOLONE
  4. DEKRISTOL [Concomitant]
     Active Substance: CHOLECALCIFEROL
  5. LIXIANA [Concomitant]
     Active Substance: EDOXABAN TOSYLATE
     Indication: ATRIAL FIBRILLATION
     Route: 048
  6. TOCILIZUMAB. [Suspect]
     Active Substance: TOCILIZUMAB
     Route: 058
     Dates: start: 20180112
  7. NOVODIGAL [Concomitant]
  8. JODETTEN [Concomitant]
  9. RITUXIMAB. [Suspect]
     Active Substance: RITUXIMAB
     Indication: RHEUMATOID ARTHRITIS
     Route: 065
     Dates: start: 202008
  10. OMEPRAZOL [Concomitant]
     Active Substance: OMEPRAZOLE

REACTIONS (4)
  - Papule [Unknown]
  - Helicobacter gastritis [Unknown]
  - Gastroenteritis [Recovered/Resolved]
  - Overdose [Unknown]

NARRATIVE: CASE EVENT DATE: 20180105
